FAERS Safety Report 4303395-2 (Version None)
Quarter: 2004Q1

REPORT INFORMATION
  Report Type: 
  Country: None (occurrence: None)
  Receive Date: 20040223
  Receipt Date: 20040113
  Transmission Date: 20041129
  Serious: Yes (Other)
  Sender: FDA-Public Use
  Company Number: US064201GBWYE506013JAN04

PATIENT
  Age: 33 Year
  Sex: Female

DRUGS (1)
  1. ENBREL [Suspect]
     Indication: DRUG USE FOR UNKNOWN INDICATION
     Dates: start: 20010101

REACTIONS (7)
  - ASTHENIA [None]
  - DEMYELINATION [None]
  - DYSPHAGIA [None]
  - FACIAL PARESIS [None]
  - PARAESTHESIA [None]
  - SCREAMING [None]
  - SYNCOPE [None]
